FAERS Safety Report 19732885 (Version 9)
Quarter: 2023Q1

REPORT INFORMATION
  Report Type: Report from Study
  Country: US (occurrence: US)
  Receive Date: 20210823
  Receipt Date: 20230211
  Transmission Date: 20230418
  Serious: Yes (Other)
  Sender: FDA-Public Use
  Company Number: US-AUROBINDO-AUR-APL-2021-035367

PATIENT
  Age: 72 Year
  Sex: Female
  Weight: 81.4 kg

DRUGS (3)
  1. BELINOSTAT [Suspect]
     Active Substance: BELINOSTAT
     Indication: Acute myeloid leukaemia refractory
     Dosage: 9350 MILLIGRAM
     Route: 065
     Dates: start: 20210406
  2. BELINOSTAT [Suspect]
     Active Substance: BELINOSTAT
     Indication: Myelodysplastic syndrome
  3. PEVONEDISTAT HYDROCHLORIDE [Suspect]
     Active Substance: PEVONEDISTAT HYDROCHLORIDE
     Indication: Product used for unknown indication
     Dosage: 207 MILLIGRAM
     Route: 065
     Dates: start: 20210406

REACTIONS (13)
  - Leukocytosis [Unknown]
  - Hypertension [Unknown]
  - Blood creatinine increased [Unknown]
  - Fatigue [Unknown]
  - Hyperglycaemia [Unknown]
  - Hypocalcaemia [Unknown]
  - Hyponatraemia [Unknown]
  - Nausea [Unknown]
  - Vomiting [Unknown]
  - Hypomagnesaemia [Unknown]
  - Blood alkaline phosphatase increased [Unknown]
  - Anaemia [Unknown]
  - Blood urea increased [Unknown]

NARRATIVE: CASE EVENT DATE: 20210406
